FAERS Safety Report 25317750 (Version 2)
Quarter: 2025Q2

REPORT INFORMATION
  Report Type: Report from Study
  Country: US (occurrence: US)
  Receive Date: 20250515
  Receipt Date: 20250602
  Transmission Date: 20250717
  Serious: Yes (Hospitalization)
  Sender: TAKEDA
  Company Number: US-TAKEDA-2025TUS032088

PATIENT
  Sex: Female

DRUGS (11)
  1. PONATINIB [Suspect]
     Active Substance: PONATINIB
     Indication: Acute lymphocytic leukaemia
     Dosage: 30 MILLIGRAM, QD
  2. PONATINIB [Suspect]
     Active Substance: PONATINIB
     Dosage: 15 MILLIGRAM, QD
  3. PONATINIB [Suspect]
     Active Substance: PONATINIB
     Dosage: 15 MILLIGRAM, QD
  4. ACYCLOVIR [Concomitant]
     Active Substance: ACYCLOVIR
  5. ROSUVASTATIN CALCIUM [Concomitant]
     Active Substance: ROSUVASTATIN CALCIUM
  6. METOPROLOL TARTRATE [Concomitant]
     Active Substance: METOPROLOL TARTRATE
  7. PEPCID AC [Concomitant]
     Active Substance: FAMOTIDINE
  8. KEPPRA [Concomitant]
     Active Substance: LEVETIRACETAM
  9. BLINCYTO [Concomitant]
     Active Substance: BLINATUMOMAB
  10. METHOTREXATE [Concomitant]
     Active Substance: METHOTREXATE
  11. ATOVAQUONE [Concomitant]
     Active Substance: ATOVAQUONE

REACTIONS (12)
  - COVID-19 [Unknown]
  - Product dose omission issue [Unknown]
  - Rosacea [Unknown]
  - Skin disorder [Recovering/Resolving]
  - Rash [Unknown]
  - Pruritus [Unknown]
  - Haemoglobin decreased [Unknown]
  - Headache [Unknown]
  - Pain [Unknown]
  - Diarrhoea [Unknown]
  - Dehydration [Unknown]
  - Asthenia [Unknown]
